FAERS Safety Report 10175014 (Version 1)
Quarter: 2014Q2

REPORT INFORMATION
  Report Type: Spontaneous
  Country: TW (occurrence: TW)
  Receive Date: 20140515
  Receipt Date: 20140515
  Transmission Date: 20141212
  Serious: Yes (Death, Hospitalization, Other)
  Sender: FDA-Public Use
  Company Number: PHHY2014TW058795

PATIENT
  Age: 58 Year
  Sex: Female

DRUGS (6)
  1. CICLOSPORIN [Suspect]
     Indication: INTERSTITIAL LUNG DISEASE
     Dosage: 100 MG PER DAY
  2. PREDNISOLONE [Suspect]
     Indication: INTERSTITIAL LUNG DISEASE
     Dosage: 30 MG, PER DAY
  3. AZATHIOPRINE [Suspect]
     Indication: INTERSTITIAL LUNG DISEASE
  4. METHOTREXATE [Suspect]
     Indication: INTERSTITIAL LUNG DISEASE
     Dosage: 5 MG PER WEEK
  5. HYDROXYCHLOROQUINE [Suspect]
     Indication: INTERSTITIAL LUNG DISEASE
     Dosage: 400 MG, PER DAY
  6. METHYLPREDNISOLONE [Suspect]
     Indication: INTERSTITIAL LUNG DISEASE
     Dosage: 1 G, PER DAY (FOR 3 DAYS)

REACTIONS (14)
  - Respiratory failure [Fatal]
  - Skin lesion [Unknown]
  - Myopathy [Unknown]
  - Pulmonary toxicity [Unknown]
  - Dyspnoea [Unknown]
  - Cough [Unknown]
  - Oropharyngeal pain [Unknown]
  - Pyrexia [Unknown]
  - Lung infiltration [Unknown]
  - Hypoxia [Unknown]
  - Pulmonary oedema [Unknown]
  - Bronchial metaplasia [Unknown]
  - Upper respiratory tract inflammation [Unknown]
  - Interstitial lung disease [Unknown]
